FAERS Safety Report 17657653 (Version 2)
Quarter: 2020Q3

REPORT INFORMATION
  Report Type: Report from Study
  Country: US (occurrence: US)
  Receive Date: 20200411
  Receipt Date: 20200707
  Transmission Date: 20201102
  Serious: Yes (Other)
  Sender: FDA-Public Use
  Company Number: US-SA-2020SA091932

PATIENT

DRUGS (1)
  1. INSULIN GLARGINE [Suspect]
     Active Substance: INSULIN GLARGINE
     Indication: TYPE 2 DIABETES MELLITUS
     Dosage: 70 IU, QD
     Route: 058
     Dates: start: 2012

REACTIONS (2)
  - Brain neoplasm [Unknown]
  - Memory impairment [Unknown]
